FAERS Safety Report 13288740 (Version 3)
Quarter: 2017Q2

REPORT INFORMATION
  Report Type: Spontaneous
  Country: US (occurrence: US)
  Receive Date: 20170302
  Receipt Date: 20170605
  Transmission Date: 20170830
  Serious: No
  Sender: FDA-Public Use
  Company Number: US-PFIZER INC-2017087917

PATIENT
  Age: 57 Year
  Sex: Female

DRUGS (1)
  1. TETRACYCLINE HCL [Suspect]
     Active Substance: TETRACYCLINE HYDROCHLORIDE
     Indication: GLOMERULONEPHRITIS CHRONIC
     Dosage: UNK
     Route: 048
     Dates: start: 1962, end: 1968

REACTIONS (2)
  - Tooth disorder [Unknown]
  - Tooth injury [Unknown]

NARRATIVE: CASE EVENT DATE: 1965
